FAERS Safety Report 13613105 (Version 2)
Quarter: 2017Q2

REPORT INFORMATION
  Report Type: Spontaneous
  Country: US (occurrence: US)
  Receive Date: 20170605
  Receipt Date: 20170628
  Transmission Date: 20170830
  Serious: Yes (Hospitalization)
  Sender: FDA-Public Use
  Company Number: US-UNITED THERAPEUTICS-UNT-2017-006932

PATIENT
  Sex: Female

DRUGS (2)
  1. TYVASO [Suspect]
     Active Substance: TREPROSTINIL
     Indication: PULMONARY ARTERIAL HYPERTENSION
     Dosage: 72 ?G, QID
     Dates: start: 20160509
  2. TYVASO [Suspect]
     Active Substance: TREPROSTINIL
     Dosage: 54 ?G, QID
     Dates: start: 20170125

REACTIONS (6)
  - Foot fracture [Unknown]
  - Peroneal nerve palsy [Unknown]
  - Off label use [Unknown]
  - Post procedural complication [Unknown]
  - Diabetes mellitus [Unknown]
  - Swelling [Unknown]

NARRATIVE: CASE EVENT DATE: 2017
